FAERS Safety Report 8407602-6 (Version None)
Quarter: 2012Q2

REPORT INFORMATION
  Report Type: 
  Country: None (occurrence: None)
  Receive Date: 20120529
  Receipt Date: 20071128
  Transmission Date: 20120825
  Serious: Yes (Hospitalization)
  Sender: FDA-Public Use
  Company Number: 02100-JPN-07-0737

PATIENT
  Age: 85 Year
  Sex: Male

DRUGS (11)
  1. ASCORBIC ACID [Concomitant]
  2. LANSOPRAZOLE [Concomitant]
  3. PLETAL [Suspect]
     Dosage: 100 MG, BID, ORAL
     Route: 048
     Dates: start: 20071004, end: 20071023
  4. NORVASC [Concomitant]
  5. ALFAROL (ALFACALCIDOL) [Concomitant]
  6. LASIX [Concomitant]
  7. AMOBAN (ZOPICLONE) [Concomitant]
  8. LIPLE (ALPROSTADIL) [Concomitant]
  9. PURSENNID (SENNOSIDE) [Concomitant]
  10. FESIN (SACCHARATED IRON OXIDE) [Concomitant]
  11. NESP (DARBEPOETIN ALFA (GENETICAL RECOMBINATION)) [Concomitant]

REACTIONS (3)
  - OESOPHAGEAL DISORDER [None]
  - MUCOSAL HAEMORRHAGE [None]
  - MOUTH HAEMORRHAGE [None]
